FAERS Safety Report 9963147 (Version 1)
Quarter: 2014Q1

REPORT INFORMATION
  Report Type: Report from Study
  Country: US (occurrence: US)
  Receive Date: 20140305
  Receipt Date: 20140305
  Transmission Date: 20141002
  Serious: No
  Sender: FDA-Public Use
  Company Number: US-ABBVIE-13P-163-1114281-00

PATIENT
  Age: 30 Year
  Sex: Male
  Weight: 64.47 kg

DRUGS (5)
  1. HUMIRA [Suspect]
     Indication: CROHN^S DISEASE
     Route: 058
     Dates: start: 201303, end: 201303
  2. HUMIRA [Suspect]
     Route: 058
     Dates: start: 201304, end: 201304
  3. HUMIRA [Suspect]
     Route: 058
     Dates: start: 201304, end: 20130615
  4. VITAMIN B12 [Concomitant]
     Indication: HYPOVITAMINOSIS
     Route: 030
  5. MULTIVITAMIN [Concomitant]
     Indication: NUTRITIONAL SUPPLEMENTATION

REACTIONS (2)
  - Nausea [Unknown]
  - Abdominal pain [Unknown]
